FAERS Safety Report 12239348 (Version 1)
Quarter: 2016Q2

REPORT INFORMATION
  Report Type: Spontaneous
  Country: SI (occurrence: SI)
  Receive Date: 20160405
  Receipt Date: 20160405
  Transmission Date: 20160815
  Serious: Yes (Hospitalization)
  Sender: FDA-Public Use
  Company Number: SI-FRESENIUS KABI-FK201601634

PATIENT
  Age: 71 Year
  Sex: Female

DRUGS (2)
  1. CARBOPLATIN PLIVA [Suspect]
     Active Substance: CARBOPLATIN
     Indication: ENDOMETRIAL CANCER
     Route: 042
     Dates: start: 20160303, end: 20160308
  2. PACLITAXEL 6MG/ML CONCENTRATE FOR SOLUTION FOR INFUSION [Suspect]
     Active Substance: PACLITAXEL
     Indication: ENDOMETRIAL CANCER
     Route: 042
     Dates: start: 20160303, end: 20160308

REACTIONS (5)
  - Diarrhoea [Recovered/Resolved]
  - Asthenia [Recovered/Resolved]
  - Nausea [Recovered/Resolved]
  - Body temperature increased [Recovered/Resolved]
  - Off label use [Recovered/Resolved]

NARRATIVE: CASE EVENT DATE: 20160303
